FAERS Safety Report 12604519 (Version 1)
Quarter: 2016Q3

REPORT INFORMATION
  Report Type: Spontaneous
  Country: SG (occurrence: SG)
  Receive Date: 20160728
  Receipt Date: 20160728
  Transmission Date: 20161109
  Serious: Yes (Other)
  Sender: FDA-Public Use
  Company Number: SG-MYLANLABS-2016M1030817

PATIENT

DRUGS (6)
  1. PHENYTOIN. [Concomitant]
     Active Substance: PHENYTOIN
     Indication: SEIZURE
     Route: 065
  2. VALPROATE [Concomitant]
     Active Substance: VALPROIC ACID
     Indication: SEIZURE
     Route: 065
  3. KETAMINE [Suspect]
     Active Substance: KETAMINE
     Indication: SEIZURE
     Dosage: 5 MG/KG
     Route: 065
  4. KETAMINE [Suspect]
     Active Substance: KETAMINE
     Dosage: 1 - 10 MG/KG/HR
     Route: 065
  5. MIDAZOLAM [Concomitant]
     Active Substance: MIDAZOLAM\MIDAZOLAM HYDROCHLORIDE
     Indication: SEIZURE
     Route: 065
  6. PHENOBARBITAL. [Concomitant]
     Active Substance: PHENOBARBITAL
     Indication: SEIZURE
     Route: 065

REACTIONS (1)
  - Hepatic function abnormal [Recovering/Resolving]
